FAERS Safety Report 8201736-7 (Version None)
Quarter: 2012Q1

REPORT INFORMATION
  Report Type: 
  Country: None (occurrence: None)
  Receive Date: 20120312
  Receipt Date: 20120302
  Transmission Date: 20120608
  Serious: Yes (Other)
  Sender: FDA-Public Use
  Company Number: AR-ROCHE-1047104

PATIENT
  Sex: Male

DRUGS (1)
  1. LUCENTIS [Suspect]
     Indication: CATARACT
     Dosage: 6 AMPOULES,FROM APR OR MAY 2011
     Dates: start: 20110101

REACTIONS (2)
  - CATARACT [None]
  - VISUAL ACUITY REDUCED [None]
